FAERS Safety Report 11870542 (Version 1)
Quarter: 2015Q4

REPORT INFORMATION
  Report Type: Spontaneous
  Country: US (occurrence: US)
  Receive Date: 20151228
  Receipt Date: 20151228
  Transmission Date: 20160305
  Serious: Yes (Hospitalization, Other)
  Sender: FDA-Public Use
  Company Number: US-SANOFI-AVENTIS-2012SA065510

PATIENT
  Age: 59 Year
  Sex: Male

DRUGS (2)
  1. PLAVIX [Suspect]
     Active Substance: CLOPIDOGREL BISULFATE
     Indication: STENT PLACEMENT
     Route: 065
     Dates: start: 20050703, end: 2008
  2. ASPIRIN. [Suspect]
     Active Substance: ASPIRIN
     Route: 065

REACTIONS (4)
  - Cerebral haemorrhage [Unknown]
  - Balance disorder [Unknown]
  - Cerebrovascular accident [Unknown]
  - Amnesia [Unknown]

NARRATIVE: CASE EVENT DATE: 200809
